FAERS Safety Report 12477136 (Version 1)
Quarter: 2016Q2

REPORT INFORMATION
  Report Type: Spontaneous
  Country: JP (occurrence: JP)
  Receive Date: 20160617
  Receipt Date: 20160617
  Transmission Date: 20160815
  Serious: Yes (Hospitalization)
  Sender: FDA-Public Use
  Company Number: JP-ASTRAZENECA-2016SE65504

PATIENT
  Age: 85 Year
  Sex: Male

DRUGS (1)
  1. SYMBICORT [Suspect]
     Active Substance: BUDESONIDE\FORMOTEROL FUMARATE DIHYDRATE
     Dosage: 2 DF, BEFORE BREAKFAST AND SUPPER
     Route: 055
     Dates: start: 2011

REACTIONS (1)
  - Fall [Unknown]

NARRATIVE: CASE EVENT DATE: 201606
